FAERS Safety Report 21147666 (Version 1)
Quarter: 2022Q3

REPORT INFORMATION
  Report Type: Spontaneous
  Country: US (occurrence: US)
  Receive Date: 20220729
  Receipt Date: 20220729
  Transmission Date: 20221027
  Serious: No
  Sender: FDA-Public Use
  Company Number: US-ABBVIE-22K-163-4463941-00

PATIENT

DRUGS (1)
  1. NIACIN [Suspect]
     Active Substance: NIACIN
     Indication: Blood cholesterol abnormal
     Route: 048

REACTIONS (3)
  - Product physical issue [Unknown]
  - Product residue present [Unknown]
  - Drug ineffective [Unknown]
